FAERS Safety Report 18869400 (Version 1)
Quarter: 2021Q1

REPORT INFORMATION
  Report Type: Spontaneous
  Country: BE (occurrence: BE)
  Receive Date: 20210210
  Receipt Date: 20210210
  Transmission Date: 20210420
  Serious: Yes (Other)
  Sender: FDA-Public Use
  Company Number: BE-ROCHE-2766401

PATIENT
  Age: 83 Year
  Sex: Female

DRUGS (3)
  1. XOLAIR [Suspect]
     Active Substance: OMALIZUMAB
     Dosage: UNK (THREE DAYS LATER FIRST DOSE)
     Route: 065
     Dates: start: 20210110
  2. XOLAIR [Suspect]
     Active Substance: OMALIZUMAB
     Indication: CHRONIC SPONTANEOUS URTICARIA
     Dosage: UNK (ON THURSDAY)
     Route: 065
  3. XOLAIR [Suspect]
     Active Substance: OMALIZUMAB
     Dosage: 2 DF, QD (2X/DAY)
     Route: 065
     Dates: start: 20210107

REACTIONS (9)
  - Syncope [Unknown]
  - Decreased appetite [Unknown]
  - Syncope [Unknown]
  - Dizziness [Unknown]
  - Fatigue [Unknown]
  - Vomiting [Unknown]
  - Pruritus [Recovered/Resolved]
  - Aphonia [Recovering/Resolving]
  - Arthropod sting [Unknown]

NARRATIVE: CASE EVENT DATE: 20210110
